FAERS Safety Report 22919135 (Version 3)
Quarter: 2023Q4

REPORT INFORMATION
  Report Type: Report from Study
  Country: JP (occurrence: JP)
  Receive Date: 20230907
  Receipt Date: 20231114
  Transmission Date: 20240109
  Serious: Yes (Other)
  Sender: FDA-Public Use
  Company Number: JP-ABBVIE-22K-087-4372678-00

PATIENT
  Age: 46 Year
  Sex: Male

DRUGS (12)
  1. SKYRIZI [Suspect]
     Active Substance: RISANKIZUMAB-RZAA
     Indication: Psoriasis
     Dosage: 150 MG/MONTH
     Route: 058
     Dates: start: 20210601, end: 20210629
  2. SKYRIZI [Suspect]
     Active Substance: RISANKIZUMAB-RZAA
     Dosage: 150 MG/ 3 MONTHS
     Route: 058
     Dates: start: 20210629, end: 20211228
  3. SKYRIZI [Suspect]
     Active Substance: RISANKIZUMAB-RZAA
     Dosage: 150 MG/ 22 WEEKS
     Route: 058
     Dates: start: 20221108
  4. SKYRIZI [Suspect]
     Active Substance: RISANKIZUMAB-RZAA
     Dosage: 150 MG/ 14 WEEKS
     Route: 058
     Dates: start: 20211228, end: 20220712
  5. SKYRIZI [Suspect]
     Active Substance: RISANKIZUMAB-RZAA
     Dosage: 150 MG/ 17 WEEKS
     Route: 058
     Dates: start: 20220712, end: 20221108
  6. BILASTINE [Concomitant]
     Active Substance: BILASTINE
     Indication: Psoriasis
     Dosage: 20 MILLIGRAM
     Route: 048
     Dates: start: 20180130, end: 202206
  7. EPINASTINE HYDROCHLORIDE [Concomitant]
     Active Substance: EPINASTINE HYDROCHLORIDE
     Indication: Psoriasis
     Dosage: 20 MILLIGRAM
     Route: 048
     Dates: start: 20150803, end: 202206
  8. FEBUXOSTAT [Concomitant]
     Active Substance: FEBUXOSTAT
     Indication: Hyperuricaemia
     Dosage: 10 MILLIGRAM
     Route: 048
     Dates: start: 20150803
  9. DEPRODONE PROPIONATE [Concomitant]
     Active Substance: DEPRODONE PROPIONATE
     Indication: Psoriasis
     Dosage: FREQUENCY TEXT: PRN
     Route: 061
     Dates: start: 20161212, end: 202206
  10. DIPHENHYDRAMINE [Concomitant]
     Active Substance: DIPHENHYDRAMINE
     Indication: Psoriasis
     Dosage: PRD
     Route: 061
     Dates: start: 20161212, end: 202206
  11. INFLUENZA VIRUS VACCINE [Concomitant]
     Active Substance: INFLUENZA VIRUS VACCINE
     Indication: Antiviral prophylaxis
     Dosage: FREQUENCY TEXT: ONCE
     Route: 058
     Dates: start: 20211211, end: 20211211
  12. Maxacalcitol betamethasone butyrate propionate [Concomitant]
     Indication: Psoriasis
     Dosage: 0.10 GRAM
     Route: 061
     Dates: start: 20191008, end: 202206

REACTIONS (2)
  - Neurofibroma [Recovered/Resolved]
  - Coronavirus infection [Recovered/Resolved]

NARRATIVE: CASE EVENT DATE: 20220117
